FAERS Safety Report 24981144 (Version 1)
Quarter: 2025Q1

REPORT INFORMATION
  Report Type: Spontaneous
  Country: FR (occurrence: None)
  Receive Date: 20250218
  Receipt Date: 20250218
  Transmission Date: 20250409
  Serious: Yes (Other)
  Sender: ORION
  Company Number: None

PATIENT
  Age: 16 Year
  Sex: Male
  Weight: 52 kg

DRUGS (2)
  1. METHOTREXATE [Interacting]
     Active Substance: METHOTREXATE
     Indication: B-cell type acute leukaemia
     Dates: start: 20241113, end: 20241204
  2. MERCAPTOPURINE [Interacting]
     Active Substance: MERCAPTOPURINE
     Indication: B-cell type acute leukaemia
     Dates: start: 20241022, end: 20241206

REACTIONS (2)
  - Acquired factor V deficiency [Not Recovered/Not Resolved]
  - Drug interaction [Unknown]

NARRATIVE: CASE EVENT DATE: 20240101
